FAERS Safety Report 8114891-4 (Version None)
Quarter: 2012Q1

REPORT INFORMATION
  Report Type: 
  Country: None (occurrence: None)
  Receive Date: 20120206
  Receipt Date: 20120125
  Transmission Date: 20120608
  Serious: Yes (Other)
  Sender: FDA-Public Use
  Company Number: CA-JNJFOC-20120200876

PATIENT
  Sex: Female
  Weight: 64.9 kg

DRUGS (4)
  1. ORTHO TRI-CYCLEN [Concomitant]
     Route: 065
  2. PREDNISONE TAB [Concomitant]
     Route: 065
  3. REMICADE [Suspect]
     Indication: CROHN'S DISEASE
     Dosage: 50 INFUSIONS TILL PRESENT
     Route: 042
  4. CIPROFLOXACIN [Suspect]
     Indication: VAGINAL CYST
     Route: 065

REACTIONS (2)
  - HEPATIC ENZYME INCREASED [None]
  - VAGINAL CYST [None]
